FAERS Safety Report 16469774 (Version 1)
Quarter: 2019Q3

REPORT INFORMATION
  Report Type: Spontaneous
  Country: US (occurrence: US)
  Receive Date: 20190623
  Receipt Date: 20190623
  Transmission Date: 20191004
  Serious: Yes (Hospitalization, Other)
  Sender: FDA-Public Use
  Company Number: None

PATIENT
  Age: 64 Year
  Sex: Female
  Weight: 78.75 kg

DRUGS (5)
  1. CHLORTHALIDONE 25 MG TABLETS [Suspect]
     Active Substance: CHLORTHALIDONE
     Indication: HYPERTENSION
     Dosage: ?          QUANTITY:30 TABLET(S);?
     Route: 048
     Dates: start: 20190405, end: 20190419
  2. LOSARTAN. [Concomitant]
     Active Substance: LOSARTAN
  3. GLUCOSAMINE 750 MG/CHONDROITIN [Concomitant]
  4. VITAMIN D3 [Concomitant]
     Active Substance: CHOLECALCIFEROL
  5. METROPOLOL [Concomitant]
     Active Substance: METOPROLOL

REACTIONS (8)
  - Fatigue [None]
  - Muscular weakness [None]
  - Neck pain [None]
  - Headache [None]
  - Blood sodium decreased [None]
  - Muscle spasms [None]
  - Vision blurred [None]
  - Nausea [None]

NARRATIVE: CASE EVENT DATE: 20190405
